FAERS Safety Report 17567128 (Version 7)
Quarter: 2020Q4

REPORT INFORMATION
  Report Type: Spontaneous
  Country: FR (occurrence: FR)
  Receive Date: 20200320
  Receipt Date: 20201217
  Transmission Date: 20210113
  Serious: Yes (Hospitalization, Other)
  Sender: FDA-Public Use
  Company Number: FR-US-PROVELL PHARMACEUTICALS LLC-9088598

PATIENT
  Age: 79 Year
  Sex: Female
  Weight: 66 kg

DRUGS (9)
  1. ROSUVASTATINE [Concomitant]
     Active Substance: ROSUVASTATIN
     Indication: PRODUCT USED FOR UNKNOWN INDICATION
     Dates: start: 20190220
  2. LEVOTHYROX [Suspect]
     Active Substance: LEVOTHYROXINE
     Dosage: START IN JUL 2017
  3. SPIRONOLACTONE. [Concomitant]
     Active Substance: SPIRONOLACTONE
     Indication: PRODUCT USED FOR UNKNOWN INDICATION
     Dates: start: 20190220
  4. LEVOTHYROX [Suspect]
     Active Substance: LEVOTHYROXINE
     Indication: AUTOIMMUNE THYROIDITIS
     Dosage: START ON 24 MAY 2017
     Dates: end: 201707
  5. TARKA [Concomitant]
     Active Substance: TRANDOLAPRIL\VERAPAMIL HYDROCHLORIDE
     Indication: PRODUCT USED FOR UNKNOWN INDICATION
     Dates: start: 20190220, end: 202006
  6. PARACETAMOL ARROW [Concomitant]
     Active Substance: ACETAMINOPHEN
     Indication: PRODUCT USED FOR UNKNOWN INDICATION
     Dates: start: 20190220
  7. LEVOTHYROX [Suspect]
     Active Substance: LEVOTHYROXINE
     Dosage: START IN 20 FEB 2019
  8. ELIQUIS [Concomitant]
     Active Substance: APIXABAN
     Indication: PRODUCT USED FOR UNKNOWN INDICATION
  9. ULTRA-LEVURE [Concomitant]
     Active Substance: SACCHAROMYCES CEREVISIAE
     Indication: PRODUCT USED FOR UNKNOWN INDICATION
     Dates: start: 20190220

REACTIONS (41)
  - Ill-defined disorder [Unknown]
  - Vomiting [Unknown]
  - Thyroid mass [Unknown]
  - Vertigo [Recovered/Resolved]
  - Alopecia [Unknown]
  - Cystitis [Unknown]
  - Pulmonary embolism [Unknown]
  - Abdominal pain lower [Unknown]
  - Fatigue [Unknown]
  - Heart rate decreased [Unknown]
  - Hypokalaemia [Unknown]
  - Renal failure [Unknown]
  - Malaise [Unknown]
  - Nausea [Unknown]
  - Red blood cell sedimentation rate increased [Unknown]
  - Ear congestion [Unknown]
  - Eye irritation [Unknown]
  - Blood thyroid stimulating hormone increased [Unknown]
  - Myalgia [Unknown]
  - Epistaxis [Recovered/Resolved]
  - Skin lesion [Unknown]
  - Neck pain [Unknown]
  - Back pain [Unknown]
  - Nasal congestion [Unknown]
  - Diarrhoea [Unknown]
  - Atrial fibrillation [Unknown]
  - Arrhythmia [Unknown]
  - Abdominal pain upper [Recovered/Resolved]
  - Dysuria [Unknown]
  - Anti-thyroid antibody positive [Unknown]
  - Haematochezia [Unknown]
  - Headache [Recovered/Resolved]
  - Hypogammaglobulinaemia [Unknown]
  - Loss of consciousness [Unknown]
  - Tracheal inflammation [Unknown]
  - Muscle spasms [Unknown]
  - Dizziness [Unknown]
  - Bacteriuria [Unknown]
  - C-reactive protein increased [Unknown]
  - Dysgeusia [Unknown]
  - Insomnia [Unknown]

NARRATIVE: CASE EVENT DATE: 201703
